FAERS Safety Report 5445152-X (Version None)
Quarter: 2007Q3

REPORT INFORMATION
  Report Type: 
  Country: None (occurrence: None)
  Receive Date: 20070906
  Receipt Date: 20070829
  Transmission Date: 20080115
  Serious: Yes (Death, Life-Threatening)
  Sender: FDA-Public Use
  Company Number: GB-PFIZER INC-2007017069

PATIENT
  Sex: Female
  Weight: 87 kg

DRUGS (6)
  1. EPIRUBICIN HYDROCHLORIDE [Suspect]
     Indication: BREAST CANCER
     Dates: start: 20061202, end: 20070118
  2. DOCETAXEL [Suspect]
     Indication: BREAST CANCER
     Dates: start: 20061005, end: 20070118
  3. ENOXAPARIN SODIUM [Concomitant]
     Dosage: DAILY DOSE:120MG-FREQ:DAILY
     Route: 058
  4. AUGMENTIN '125' [Concomitant]
     Route: 048
  5. DEXAMETHASONE 0.5MG TAB [Concomitant]
     Dosage: DAILY DOSE:4MG-FREQ:DAILY
     Route: 048
  6. CITALOPRAM HYDROBROMIDE [Concomitant]
     Dosage: DAILY DOSE:20MG-FREQ:DAILY
     Route: 048

REACTIONS (3)
  - DISSEMINATED INTRAVASCULAR COAGULATION [None]
  - DYSPHASIA [None]
  - ODYNOPHAGIA [None]
